FAERS Safety Report 8113395-2 (Version None)
Quarter: 2012Q1

REPORT INFORMATION
  Report Type: 
  Country: None (occurrence: None)
  Receive Date: 20120203
  Receipt Date: 20120131
  Transmission Date: 20120608
  Serious: Yes (Death, Hospitalization)
  Sender: FDA-Public Use
  Company Number: PHEH2011US012793

PATIENT
  Sex: Male
  Weight: 83 kg

DRUGS (20)
  1. CIPROFLOXACIN [Concomitant]
     Dosage: 500 MG, UNK
  2. ALBUTEROL [Concomitant]
     Dosage: 2 DF (90 MCG), UNK
     Dates: start: 20111120
  3. CHLORPHENETHAZINE HYDROCHLORIDE [Concomitant]
     Dosage: 1 TSP, UNK
     Route: 048
  4. LORAZEPAM [Concomitant]
     Dosage: 1 MG, UNK
     Route: 048
  5. FENTANYL CITRATE [Concomitant]
     Dosage: 1 DF (50 MCG/HR), UNK
     Route: 062
     Dates: start: 20111117
  6. CARBOPLATIN [Concomitant]
  7. ACETAMINOPHEN AND HYDROCODONE BITARTRATE [Concomitant]
     Dosage: 1-2 DF (5-325 MG), UNK
     Route: 048
     Dates: start: 20111018
  8. ZOMETA [Suspect]
     Indication: HYPERCALCAEMIA OF MALIGNANCY
     Dosage: 4 MG, ONCE/SINGLE
     Route: 042
     Dates: start: 20110929
  9. PERCOCET [Concomitant]
     Dosage: 2 DF, UNK
     Route: 048
  10. CHEMOTHERAPEUTICS [Concomitant]
  11. MUCINEX [Concomitant]
     Dosage: 1200 MG, UNK
     Route: 048
  12. AUGMENTAN ORAL [Concomitant]
     Dosage: 1 DF (675-125 MG), UNK
     Route: 048
     Dates: start: 20111110
  13. TAXOL [Concomitant]
  14. VICODIN [Concomitant]
  15. MULTI-VITAMINS [Concomitant]
     Route: 048
  16. TERAZOSIN HCL [Concomitant]
     Dosage: 2 MG, UNK
     Route: 048
  17. DEXAMETHASONE [Concomitant]
     Dosage: 4 MG, UNK
     Route: 048
     Dates: start: 20111110
  18. PREDNISONE TAB [Concomitant]
     Dosage: 10 MG, UNK
     Route: 048
  19. PROCHLORPERAZINE MALEATE [Concomitant]
     Dosage: 10 MG, UNK
     Route: 048
     Dates: start: 20110922
  20. MORPHINE [Concomitant]
     Dosage: 4 MG/ML, UNK
     Dates: start: 20111103

REACTIONS (12)
  - CACHEXIA [None]
  - ABDOMINAL PAIN [None]
  - CHEST PAIN [None]
  - PAIN IN EXTREMITY [None]
  - METASTASES TO LIVER [None]
  - URINARY RETENTION [None]
  - DEEP VEIN THROMBOSIS [None]
  - METASTASES TO BONE [None]
  - BLOOD PRESSURE INCREASED [None]
  - EASTERN COOPERATIVE ONCOLOGY GROUP PERFORMANCE STATUS WORSENED [None]
  - NEOPLASM PROGRESSION [None]
  - NEOPLASM MALIGNANT [None]
